FAERS Safety Report 8383123-4 (Version None)
Quarter: 2012Q2

REPORT INFORMATION
  Report Type: 
  Country: None (occurrence: None)
  Receive Date: 20120524
  Receipt Date: 20120522
  Transmission Date: 20120825
  Serious: Yes (Hospitalization)
  Sender: FDA-Public Use
  Company Number: PHFR2012GB001220

PATIENT
  Sex: Male
  Weight: 80 kg

DRUGS (9)
  1. METOPROLOL [Concomitant]
     Dosage: 50 MG, UNK
     Route: 048
  2. ISOSORBIDE DINITRATE [Concomitant]
     Dosage: 10 MG, UNK
     Route: 048
  3. LANSOPRAZOLE [Concomitant]
     Dosage: 30 MG, UNK
  4. ALBUTEROL [Concomitant]
     Dosage: 100 MG, UNK
     Route: 048
  5. ONBREZ [Suspect]
  6. SIMVADOR [Concomitant]
     Dosage: 40 MG, UNK
  7. NITROGLYCERIN [Concomitant]
     Dosage: 10 MG, UNK
     Route: 048
  8. FLUOXETINE HCL [Concomitant]
     Dosage: 20 MG, UNK
     Route: 048
  9. METFORMIN HCL [Concomitant]
     Dosage: 500 MG, UNK
     Route: 048

REACTIONS (2)
  - RESPIRATORY FAILURE [None]
  - BRONCHOSPASM [None]
